FAERS Safety Report 8824834 (Version 1)
Quarter: 2012Q4

REPORT INFORMATION
  Report Type: 
  Country: CA (occurrence: CA)
  Receive Date: 20121004
  Receipt Date: 20121004
  Transmission Date: 20130627
  Serious: Yes (Other)
  Sender: FDA-Public Use
  Company Number: CA-ASTRAZENECA-2012SE75271

PATIENT
  Age: 69 Year
  Sex: Female

DRUGS (14)
  1. NEXIUM [Suspect]
     Route: 048
  2. TECTA [Concomitant]
  3. WELBUTRIN [Concomitant]
  4. PREMARIN [Concomitant]
  5. CELEBRAX [Concomitant]
  6. ASA [Concomitant]
  7. ELTROXINE [Concomitant]
  8. RESTORIL [Concomitant]
  9. KRILL OIL [Concomitant]
  10. FLAX SEED OIL [Concomitant]
  11. FOLIC ACID [Concomitant]
  12. CHROMIUM [Concomitant]
  13. VITAMIN C [Concomitant]
  14. VITAMIN D [Concomitant]

REACTIONS (4)
  - Thymoma [Unknown]
  - Feeling abnormal [Unknown]
  - Metastases to lung [Unknown]
  - Drug dose omission [Unknown]
